FAERS Safety Report 25235280 (Version 1)
Quarter: 2025Q2

REPORT INFORMATION
  Report Type: Spontaneous
  Country: FR (occurrence: FR)
  Receive Date: 20250424
  Receipt Date: 20250424
  Transmission Date: 20250717
  Serious: Yes (Disabling, Other)
  Sender: B BRAUN
  Company Number: FR-B.Braun Medical Inc.-2175498

PATIENT
  Age: 30 Day
  Sex: Male
  Weight: 3.25 kg

DRUGS (3)
  1. POTASSIUM CHLORIDE [Suspect]
     Active Substance: POTASSIUM CHLORIDE
     Indication: Fluid replacement
     Dates: start: 20240330, end: 20240330
  2. SODIUM CHLORIDE [Suspect]
     Active Substance: SODIUM CHLORIDE
  3. CALCIUM CHLORIDE [Suspect]
     Active Substance: CALCIUM CHLORIDE

REACTIONS (4)
  - Artery dissection [Recovered/Resolved with Sequelae]
  - Debridement [Recovered/Resolved with Sequelae]
  - Finger amputation [Recovered/Resolved with Sequelae]
  - Incorrect route of product administration [Recovered/Resolved with Sequelae]
